FAERS Safety Report 4330025-6 (Version None)
Quarter: 2004Q1

REPORT INFORMATION
  Report Type: 
  Country: None (occurrence: None)
  Receive Date: 20040329
  Receipt Date: 20040317
  Transmission Date: 20041129
  Serious: No
  Sender: FDA-Public Use
  Company Number: 2004UW05139

PATIENT
  Age: 73 Year
  Sex: Female
  Weight: 68.0396 kg

DRUGS (5)
  1. CRESTOR [Suspect]
     Indication: BLOOD CHOLESTEROL
     Dosage: 10 MG QD PO
     Route: 048
     Dates: start: 20040215
  2. SENOKOT [Concomitant]
  3. INDEPAMIDE [Concomitant]
  4. LISINOPRIL [Concomitant]
  5. IBUPROFEN [Concomitant]

REACTIONS (2)
  - JOINT SWELLING [None]
  - PARAESTHESIA [None]
